FAERS Safety Report 5153037-1 (Version None)
Quarter: 2006Q4

REPORT INFORMATION
  Report Type: 
  Country: None (occurrence: None)
  Receive Date: 20061117
  Receipt Date: 20061102
  Transmission Date: 20070319
  Serious: Yes (Hospitalization)
  Sender: FDA-Public Use
  Company Number: 2006UW22180

PATIENT
  Age: 11569 Day
  Sex: Male
  Weight: 82.7 kg

DRUGS (4)
  1. SEROQUEL [Suspect]
     Indication: SCHIZOAFFECTIVE DISORDER
     Route: 048
     Dates: start: 20061018
  2. DEPAKOTE [Concomitant]
     Indication: SCHIZOPHRENIA
     Route: 048
     Dates: start: 20040201
  3. SEROQUEL [Concomitant]
     Indication: SCHIZOPHRENIA
     Route: 048
     Dates: start: 20040201
  4. RISPERDAL [Concomitant]
     Indication: SCHIZOPHRENIA
     Route: 048
     Dates: start: 20040201, end: 20061024

REACTIONS (1)
  - SCHIZOAFFECTIVE DISORDER [None]
